FAERS Safety Report 23455039 (Version 2)
Quarter: 2024Q2

REPORT INFORMATION
  Report Type: Spontaneous
  Country: JP (occurrence: JP)
  Receive Date: 20240130
  Receipt Date: 20240429
  Transmission Date: 20240717
  Serious: Yes (Other)
  Sender: FDA-Public Use
  Company Number: JP-ONO-2024JP001566

PATIENT
  Age: 37 Year
  Sex: Male

DRUGS (5)
  1. OPDIVO [Suspect]
     Active Substance: NIVOLUMAB
     Indication: Metastatic renal cell carcinoma
     Route: 041
     Dates: start: 20230220, end: 20230220
  2. OPDIVO [Suspect]
     Active Substance: NIVOLUMAB
     Dosage: UNK
     Route: 041
     Dates: start: 20230306, end: 20231113
  3. OPDIVO [Suspect]
     Active Substance: NIVOLUMAB
     Dosage: 480
     Route: 041
     Dates: start: 20231211
  4. CABOZANTINIB S-MALATE [Concomitant]
     Active Substance: CABOZANTINIB S-MALATE
     Indication: Metastatic renal cell carcinoma
     Dosage: UNK
     Dates: start: 20230220
  5. CABOZANTINIB S-MALATE [Concomitant]
     Active Substance: CABOZANTINIB S-MALATE
     Dosage: UNK
     Dates: start: 20230306, end: 20231113

REACTIONS (2)
  - Pancytopenia [Unknown]
  - Leukoerythroblastosis [Unknown]
